FAERS Safety Report 8142505-6 (Version None)
Quarter: 2012Q1

REPORT INFORMATION
  Report Type: 
  Country: None (occurrence: None)
  Receive Date: 20120216
  Receipt Date: 20120214
  Transmission Date: 20120608
  Serious: Yes (Disabling, Other)
  Sender: FDA-Public Use
  Company Number: PT-BAYER-2011-097191

PATIENT
  Age: 43 Year
  Sex: Male

DRUGS (4)
  1. METHOTREXATE [Concomitant]
     Indication: BONE PAIN
     Dosage: 2 TABLETS, MON-TUES-WED
     Route: 048
  2. INTERFERON BETA-1B [Suspect]
     Dosage: 0.5 CC QOD
  3. INTERFERON BETA-1B [Suspect]
     Dosage: 6 MIU, UNK
     Route: 058
     Dates: start: 20120101
  4. INTERFERON BETA-1B [Suspect]
     Indication: SECONDARY PROGRESSIVE MULTIPLE SCLEROSIS
     Dosage: 0.75 CC QOD
     Route: 058
     Dates: start: 20060426

REACTIONS (9)
  - BONE PAIN [None]
  - HYPERTONIA [None]
  - MOBILITY DECREASED [None]
  - INFLUENZA LIKE ILLNESS [None]
  - PAIN [None]
  - MUSCLE SPASTICITY [None]
  - PARESIS [None]
  - MULTIPLE SCLEROSIS RELAPSE [None]
  - UNDERWEIGHT [None]
